FAERS Safety Report 7049755-0 (Version None)
Quarter: 2010Q4

REPORT INFORMATION
  Report Type: 
  Country: None (occurrence: None)
  Receive Date: 20101018
  Receipt Date: 20101007
  Transmission Date: 20110411
  Serious: Yes (Hospitalization)
  Sender: FDA-Public Use
  Company Number: B0679714A

PATIENT
  Age: 82 Year
  Sex: Female

DRUGS (6)
  1. ARIXTRA [Suspect]
     Indication: PROPHYLAXIS
     Dosage: 2.5MG PER DAY
     Route: 058
     Dates: start: 20100405, end: 20100405
  2. ACETYLSALICYLIC ACID SRT [Suspect]
     Indication: ACUTE MYOCARDIAL INFARCTION
     Dosage: 100MG PER DAY
     Route: 048
     Dates: start: 20100405, end: 20100406
  3. CLOPIDOGREL [Suspect]
     Indication: ACUTE MYOCARDIAL INFARCTION
     Dosage: 75MG PER DAY
     Route: 048
     Dates: start: 20100405, end: 20100406
  4. ATORVASTATIN [Concomitant]
     Dosage: 80MG PER DAY
     Route: 048
     Dates: start: 20100405
  5. LORAZEPAM [Concomitant]
     Indication: INSOMNIA
     Dosage: 1MG PER DAY
     Route: 048
     Dates: start: 20100405
  6. PANTOPRAZOLE SODIUM [Concomitant]
     Indication: PROPHYLAXIS
     Dosage: 40MG PER DAY
     Route: 048
     Dates: start: 20100405, end: 20100406

REACTIONS (3)
  - ANEURYSM [None]
  - HEADACHE [None]
  - SUBARACHNOID HAEMORRHAGE [None]
